FAERS Safety Report 10168828 (Version 1)
Quarter: 2014Q2

REPORT INFORMATION
  Report Type: Spontaneous
  Country: US (occurrence: None)
  Receive Date: 20140509
  Receipt Date: 20140509
  Transmission Date: 20141212
  Serious: Yes (Death)
  Sender: FDA-Public Use
  Company Number: UTC-048265

PATIENT
  Age: 54 Year
  Sex: Female

DRUGS (4)
  1. REMODULIN [Suspect]
     Indication: PULMONARY ARTERIAL HYPERTENSION
     Route: 041
     Dates: start: 20070806
  2. TRACLEER (BOSENTAN) [Concomitant]
  3. WARFARIN (WARFARIN) [Concomitant]
  4. FLOLAN (EPOPROSTENOL) [Concomitant]

REACTIONS (1)
  - Death [None]
